FAERS Safety Report 8058788-7 (Version None)
Quarter: 2012Q1

REPORT INFORMATION
  Report Type: 
  Country: None (occurrence: None)
  Receive Date: 20120120
  Receipt Date: 20120117
  Transmission Date: 20120608
  Serious: Yes (Hospitalization)
  Sender: FDA-Public Use
  Company Number: US-TEVA-317820USA

PATIENT
  Sex: Male
  Weight: 136.2 kg

DRUGS (13)
  1. ARIPIPRAZOLE [Concomitant]
     Indication: AFFECTIVE DISORDER
     Route: 048
  2. MULTAQ [Concomitant]
     Indication: ATRIAL FIBRILLATION
     Dosage: 800 MILLIGRAM;
     Route: 048
  3. NUVIGIL [Suspect]
     Indication: SLEEP APNOEA SYNDROME
     Dosage: QD/BID
     Route: 048
     Dates: start: 20100101
  4. CEFDINIR [Concomitant]
     Indication: LYMPHOEDEMA
     Dosage: 600 MILLIGRAM;
     Route: 048
  5. HYDROXYZINE [Concomitant]
     Indication: PRURITUS
     Dosage: PRN
     Route: 048
  6. PRADAXA [Concomitant]
     Indication: ATRIAL FIBRILLATION
     Dosage: 300 MILLIGRAM;
     Route: 048
  7. FUROSEMIDE [Concomitant]
     Indication: FLUID RETENTION
     Dosage: 20 MILLIGRAM;
     Route: 048
  8. CEFDINIR [Concomitant]
     Indication: INFECTION
  9. POTASSIUM CHLORIDE [Concomitant]
     Indication: SUPPLEMENTATION THERAPY
  10. ACETYLSALICYLIC ACID SRT [Concomitant]
     Indication: CARDIAC DISORDER
     Dosage: PRN
     Route: 048
  11. DILTIAZEM HCL [Concomitant]
     Indication: ATRIAL FIBRILLATION
     Route: 048
  12. METOPROLOL [Concomitant]
     Indication: HEART RATE IRREGULAR
     Route: 048
  13. ACTIFED [Concomitant]
     Indication: SINUS CONGESTION
     Route: 048

REACTIONS (8)
  - IMPAIRED DRIVING ABILITY [None]
  - OEDEMA PERIPHERAL [None]
  - DEPRESSED LEVEL OF CONSCIOUSNESS [None]
  - ASTHENIA [None]
  - DRUG EFFECT DECREASED [None]
  - LYMPHOEDEMA [None]
  - ATRIAL FIBRILLATION [None]
  - INFECTION [None]
